FAERS Safety Report 5390986-3 (Version None)
Quarter: 2007Q3

REPORT INFORMATION
  Report Type: 
  Country: None (occurrence: None)
  Receive Date: 20070716
  Receipt Date: 20050825
  Transmission Date: 20080115
  Serious: Yes (Hospitalization)
  Sender: FDA-Public Use
  Company Number: MPS1-10396

PATIENT
  Age: 29 Year
  Sex: Male
  Weight: 65 kg

DRUGS (8)
  1. ALDURAZYME [Suspect]
     Indication: MUCOPOLYSACCHARIDOSIS I
     Dosage: 0.58 MG/KG QWK IV
     Route: 042
     Dates: start: 20030630
  2. LOVENOX [Concomitant]
  3. ENALAPRIL MALEATE [Concomitant]
  4. COREG [Concomitant]
  5. LASIX [Concomitant]
  6. ADVAIR DISKUS 100/50 [Concomitant]
  7. INSPRA [Concomitant]
  8. FLOXIN [Concomitant]

REACTIONS (8)
  - ATRIOVENTRICULAR BLOCK FIRST DEGREE [None]
  - ATRIOVENTRICULAR BLOCK SECOND DEGREE [None]
  - BRADYCARDIA [None]
  - CARDIAC PSEUDOANEURYSM [None]
  - CARDIOMYOPATHY [None]
  - HYPERNATRAEMIA [None]
  - INTRACARDIAC THROMBUS [None]
  - OEDEMA [None]
